FAERS Safety Report 11099726 (Version 1)
Quarter: 2015Q2

REPORT INFORMATION
  Report Type: Spontaneous
  Country: US (occurrence: US)
  Receive Date: 20150508
  Receipt Date: 20150508
  Transmission Date: 20150821
  Serious: Yes (Other)
  Sender: FDA-Public Use
  Company Number: US-JNJFOC-20150501252

PATIENT
  Age: 54 Year
  Sex: Male
  Weight: 104.33 kg

DRUGS (2)
  1. XARELTO [Suspect]
     Active Substance: RIVAROXABAN
     Indication: CEREBROVASCULAR ACCIDENT PROPHYLAXIS
     Route: 048
     Dates: start: 201410, end: 20150424
  2. XARELTO [Suspect]
     Active Substance: RIVAROXABAN
     Indication: ATRIAL FIBRILLATION
     Route: 048
     Dates: start: 201410, end: 20150424

REACTIONS (4)
  - Abdominal distension [Not Recovered/Not Resolved]
  - Swelling [Not Recovered/Not Resolved]
  - Weight increased [Not Recovered/Not Resolved]
  - Dyspnoea [Not Recovered/Not Resolved]

NARRATIVE: CASE EVENT DATE: 201411
